FAERS Safety Report 9412705 (Version 1)
Quarter: 2013Q3

REPORT INFORMATION
  Report Type: Spontaneous
  Country: US (occurrence: US)
  Receive Date: 20130722
  Receipt Date: 20130722
  Transmission Date: 20140515
  Serious: Yes (Other)
  Sender: FDA-Public Use
  Company Number: US-PFIZER INC-2013213144

PATIENT
  Age: 88 Year
  Sex: Female
  Weight: 67.6 kg

DRUGS (16)
  1. XANAX [Suspect]
     Indication: DEPRESSION
     Dosage: 5 MG, 4X/DAY
     Dates: start: 2011
  2. CELEBREX [Suspect]
     Indication: ARTHRITIS
     Dosage: 200 MG, 2X/DAY
     Dates: start: 2007
  3. CELEBREX [Suspect]
     Dosage: 200 MG, DAILY
  4. CELEBREX [Suspect]
     Dosage: UNK
  5. NEURONTIN [Suspect]
     Indication: FIBROMYALGIA
     Dosage: 400 MG, 3X/DAY
     Dates: start: 2007
  6. NEURONTIN [Suspect]
     Indication: ARTHRITIS
     Dosage: 800 MG, 4X/DAY
     Dates: end: 2013
  7. NEURONTIN [Suspect]
     Dosage: UNK
     Dates: end: 2013
  8. LYRICA [Suspect]
     Indication: FIBROMYALGIA
     Dosage: 125 MG, 2X/DAY
     Dates: start: 2011
  9. FLUTICASONE [Concomitant]
     Indication: IMMUNE SYSTEM DISORDER
     Dosage: 3 MG, MONTHLY
  10. MORPHINE SULFATE [Concomitant]
     Dosage: 30 MG, 2X/DAY
  11. MAGNESIUM OXIDE [Concomitant]
     Indication: GASTROOESOPHAGEAL REFLUX DISEASE
     Dosage: 400 MG, DAILY
  12. PERCOCET [Concomitant]
     Indication: PAIN
     Dosage: OXYCODONE: 10MG / ACETAMINOPHEN: 325 MG, 3X/DAY
  13. REQUIP XL [Concomitant]
     Indication: NEUROPATHY PERIPHERAL
     Dosage: 4 MG, 2X/DAY
  14. TRAZODONE [Concomitant]
     Indication: SLEEP DISORDER
     Dosage: 100 MG, 2X/DAY
  15. VITAMIN B12 [Concomitant]
     Indication: IMMUNE SYSTEM DISORDER
     Dosage: 3 MG, MONTHLY
  16. VITAMIN D [Concomitant]
     Indication: HYPOVITAMINOSIS
     Dosage: 50000 IU, MONTHLY

REACTIONS (4)
  - Hernia [Unknown]
  - Lymphoedema [Unknown]
  - Oedema [Unknown]
  - Off label use [Unknown]
